FAERS Safety Report 11760597 (Version 5)
Quarter: 2018Q3

REPORT INFORMATION
  Report Type: Spontaneous
  Country: IT (occurrence: IT)
  Receive Date: 20151120
  Receipt Date: 20180808
  Transmission Date: 20181010
  Serious: Yes (Life-Threatening, Hospitalization, Other)
  Sender: FDA-Public Use
  Company Number: IT-PFIZER INC-2015395199

PATIENT
  Age: 70 Year
  Sex: Female

DRUGS (31)
  1. RIVOTRIL [Suspect]
     Active Substance: CLONAZEPAM
     Dosage: 15 GTT, QD
     Dates: start: 2015, end: 2015
  2. QUETIAPINE. [Suspect]
     Active Substance: QUETIAPINE
     Dosage: 25 MG, DAILY AT NIGHT  (QHS)
     Route: 048
  3. TRITTICO [Suspect]
     Active Substance: TRAZODONE HYDROCHLORIDE
     Dosage: 10 GTT, QD
  4. LORAZEPAM. [Suspect]
     Active Substance: LORAZEPAM
     Dosage: 15 GTT, UNK
  5. RIVOTRIL [Suspect]
     Active Substance: CLONAZEPAM
     Dosage: 10 GTT, NOCTURNAL AWAKENING
     Dates: start: 201507
  6. RIVOTRIL [Suspect]
     Active Substance: CLONAZEPAM
     Dosage: 28 GTT, QD
  7. OLANZAPINE. [Suspect]
     Active Substance: OLANZAPINE
     Dosage: UNK
  8. LORAZEPAM. [Suspect]
     Active Substance: LORAZEPAM
     Dosage: 20 GTT, QD (1 MG, 20 DROPS AT NIGHT  DAILY (BEFORE GOING TO SLEEP))
     Dates: start: 201507, end: 2015
  9. LORAZEPAM. [Suspect]
     Active Substance: LORAZEPAM
     Dosage: 0.9 MG, 18 DROPS AT NOCTURNAL AWAKENING
     Dates: start: 201507
  10. LORAZEPAM. [Suspect]
     Active Substance: LORAZEPAM
     Dosage: 20 GTT, UNK
     Dates: start: 2015, end: 2015
  11. ATORVASTATIN CALCIUM. [Suspect]
     Active Substance: ATORVASTATIN CALCIUM
     Dosage: 40 MG, DAILY IN THE EVENING
     Route: 048
     Dates: start: 201507
  12. TRITTICO [Suspect]
     Active Substance: TRAZODONE HYDROCHLORIDE
     Dosage: 13 DROPS, AT NIGHT
     Dates: start: 201501, end: 201507
  13. RIVOTRIL [Suspect]
     Active Substance: CLONAZEPAM
     Dosage: 15 GTT, QD
     Route: 065
  14. TRITTICO [Suspect]
     Active Substance: TRAZODONE HYDROCHLORIDE
     Dosage: 60 MG/ML, 15 DROPS, AT NIGHT,
  15. CARDIOASPIRIN [Suspect]
     Active Substance: ASPIRIN
     Dosage: UNK, DAILY AFTER LUNCH
     Route: 048
     Dates: start: 201507
  16. LOPRESOR /00376902/ [Suspect]
     Active Substance: METOPROLOL TARTRATE
     Dosage: 25 MG, DAILY IN THE MORNING
     Route: 048
     Dates: start: 201507
  17. BRILIQUE [Suspect]
     Active Substance: TICAGRELOR
     Dosage: 90 MG, 2X/DAY  (IN THE MORNING AND THE EVENING)
     Route: 048
     Dates: start: 201507
  18. TIROSINT [Suspect]
     Active Substance: LEVOTHYROXINE SODIUM
     Indication: HYPOTHYROIDISM
     Dosage: 25 MG, UNK
  19. LORAZEPAM. [Suspect]
     Active Substance: LORAZEPAM
     Dosage: 0.75 MG, 15 DROPS DAILY AT 12:00 PM (NOON) AND 17:30
     Dates: start: 201507, end: 2015
  20. LORAZEPAM. [Suspect]
     Active Substance: LORAZEPAM
     Dosage: 68 GTT, QD
  21. LORAZEPAM. [Suspect]
     Active Substance: LORAZEPAM
     Dosage: 20 GTT, QD
     Dates: start: 2015, end: 2015
  22. PANTOPRAZOLE [Suspect]
     Active Substance: PANTOPRAZOLE
     Dosage: 20 MG, DAILY IN THE MORNING
     Route: 048
     Dates: start: 201507
  23. TRITTICO [Suspect]
     Active Substance: TRAZODONE HYDROCHLORIDE
     Dosage: 15 GTT, QD
     Dates: start: 201507
  24. TRITTICO [Suspect]
     Active Substance: TRAZODONE HYDROCHLORIDE
     Dosage: 10 GTT, QD
  25. RIVOTRIL [Suspect]
     Active Substance: CLONAZEPAM
     Dosage: 1.8 MG, 18 DROPS AT NIGHT
     Dates: start: 2015, end: 2015
  26. OLANZAPINE. [Suspect]
     Active Substance: OLANZAPINE
     Dosage: 2.5 MG, AT NIGHT
     Dates: start: 20150101, end: 20150331
  27. OLANZAPINE. [Suspect]
     Active Substance: OLANZAPINE
     Dosage: 5 MG, AT NIGHT
     Dates: start: 20150331, end: 20150731
  28. LORAZEPAM. [Suspect]
     Active Substance: LORAZEPAM
     Dosage: 18 GTT, UNK
     Dates: start: 2015, end: 2015
  29. TRIAZOLAM. [Suspect]
     Active Substance: TRIAZOLAM
     Dosage: 0.25 MG, 20 DROPS AT NIGHT
     Dates: start: 201507
  30. RIVOTRIL [Suspect]
     Active Substance: CLONAZEPAM
     Dosage: 28 GTT, QD
  31. OLANZAPINE. [Suspect]
     Active Substance: OLANZAPINE
     Dosage: 2.5 MG, AT NIGHT
     Dates: start: 201507, end: 201509

REACTIONS (13)
  - Electrocardiogram QT prolonged [Unknown]
  - Myocardial ischaemia [Unknown]
  - Discomfort [Unknown]
  - Weight increased [Unknown]
  - Fatigue [Unknown]
  - Electrocardiogram T wave inversion [Unknown]
  - Feeling cold [Unknown]
  - Dyspnoea [Unknown]
  - Hypothyroidism [Unknown]
  - Epistaxis [Unknown]
  - Suicide attempt [Unknown]
  - Malaise [Unknown]
  - Blood pressure decreased [Unknown]

NARRATIVE: CASE EVENT DATE: 201507
